FAERS Safety Report 16020867 (Version 1)
Quarter: 2019Q1

REPORT INFORMATION
  Report Type: Spontaneous
  Country: US (occurrence: US)
  Receive Date: 20190201
  Receipt Date: 20190201
  Transmission Date: 20190418
  Serious: No
  Sender: FDA-Public Use
  Company Number: None

PATIENT
  Age: 66 Year
  Sex: Male

DRUGS (1)
  1. DALFAMPRIDINE 10MG ER TAB [Suspect]
     Active Substance: DALFAMPRIDINE
     Route: 048
     Dates: start: 20180130

REACTIONS (3)
  - Therapy cessation [None]
  - Product dispensing issue [None]
  - Gait disturbance [None]

NARRATIVE: CASE EVENT DATE: 20181218
